FAERS Safety Report 16416915 (Version 2)
Quarter: 2019Q2

REPORT INFORMATION
  Report Type: Spontaneous
  Country: US (occurrence: US)
  Receive Date: 20190611
  Receipt Date: 20190621
  Transmission Date: 20190711
  Serious: Yes (Other)
  Sender: FDA-Public Use
  Company Number: US-ASTRAZENECA-2018SF14840

PATIENT

DRUGS (11)
  1. PRILOSEC OTC [Suspect]
     Active Substance: OMEPRAZOLE MAGNESIUM
     Route: 048
     Dates: start: 199801, end: 201401
  2. PREDNISONE. [Concomitant]
     Active Substance: PREDNISONE
  3. CEPHALEXIN. [Concomitant]
     Active Substance: CEPHALEXIN
  4. VICODIN [Concomitant]
     Active Substance: ACETAMINOPHEN\HYDROCODONE BITARTRATE
  5. LISINOPRIL. [Concomitant]
     Active Substance: LISINOPRIL
  6. NEXIUM [Suspect]
     Active Substance: ESOMEPRAZOLE MAGNESIUM
     Route: 048
     Dates: start: 199801, end: 201401
  7. NEXIUM 24HR [Suspect]
     Active Substance: ESOMEPRAZOLE MAGNESIUM
     Route: 048
     Dates: start: 199801, end: 201401
  8. IBUPROFEN. [Concomitant]
     Active Substance: IBUPROFEN
  9. AMOXICILLIN. [Concomitant]
     Active Substance: AMOXICILLIN
  10. NAPROXEN. [Concomitant]
     Active Substance: NAPROXEN
  11. OMEPRAZOLE. [Concomitant]
     Active Substance: OMEPRAZOLE

REACTIONS (7)
  - Renal failure [Unknown]
  - Dyspepsia [Unknown]
  - Acute kidney injury [Unknown]
  - Renal injury [Unknown]
  - Tubulointerstitial nephritis [Unknown]
  - End stage renal disease [Unknown]
  - Chronic kidney disease [Unknown]
